FAERS Safety Report 21737899 (Version 1)
Quarter: 2022Q4

REPORT INFORMATION
  Report Type: Spontaneous
  Country: US (occurrence: US)
  Receive Date: 20221216
  Receipt Date: 20221216
  Transmission Date: 20230112
  Serious: Yes (Other)
  Sender: FDA-Public Use
  Company Number: US-BRISTOL-MYERS SQUIBB COMPANY-2022-151203

PATIENT
  Age: 56 Year
  Sex: Male

DRUGS (1)
  1. ABRAXANE [Suspect]
     Active Substance: PACLITAXEL
     Indication: Metastases to lung
     Dosage: DOSE : 190 MG;     FREQ : DAY 1 AND DAY 8

REACTIONS (2)
  - Drug ineffective [Unknown]
  - Off label use [Unknown]
